FAERS Safety Report 9869573 (Version 2)
Quarter: 2014Q1

REPORT INFORMATION
  Report Type: Spontaneous
  Country: US (occurrence: US)
  Receive Date: 20140205
  Receipt Date: 20140218
  Transmission Date: 20141002
  Serious: No
  Sender: FDA-Public Use
  Company Number: US-PFIZER INC-2014031130

PATIENT
  Age: 12 Year
  Sex: Male

DRUGS (2)
  1. DEPO-TESTOSTERONE [Suspect]
     Indication: KLINEFELTER^S SYNDROME
     Dosage: UNK
     Dates: start: 201401, end: 201401
  2. DEPO-TESTOSTERONE [Suspect]
     Dosage: UNK
     Dates: start: 201401, end: 201401

REACTIONS (6)
  - Product quality issue [Unknown]
  - Hypersensitivity [Unknown]
  - Eye swelling [Not Recovered/Not Resolved]
  - Lip swelling [Not Recovered/Not Resolved]
  - Urticaria [Unknown]
  - Skin reaction [Unknown]
